FAERS Safety Report 16904292 (Version 1)
Quarter: 2019Q4

REPORT INFORMATION
  Report Type: Spontaneous
  Country: US (occurrence: US)
  Receive Date: 20191010
  Receipt Date: 20191010
  Transmission Date: 20200122
  Serious: Yes (Other)
  Sender: FDA-Public Use
  Company Number: US-BAYER-2019-181550

PATIENT
  Age: 78 Year
  Sex: Male
  Weight: 165 kg

DRUGS (9)
  1. BAYER LOW DOSE [Suspect]
     Active Substance: ASPIRIN
     Dosage: 1 DF, QD
     Dates: start: 20190204
  2. BRILINTA [Concomitant]
     Active Substance: TICAGRELOR
     Dosage: 90 MG, BID
     Route: 048
     Dates: start: 20190204
  3. VALSARTAN. [Concomitant]
     Active Substance: VALSARTAN
     Dosage: 160 MG, QD
  4. COLECALCIFEROL [Concomitant]
     Active Substance: CHOLECALCIFEROL
     Indication: NUTRITIONAL SUPPLEMENTATION
     Dosage: 1 DF, QD
     Route: 048
     Dates: start: 201907, end: 20190822
  5. ESOMEPRAZOLE. [Concomitant]
     Active Substance: ESOMEPRAZOLE MAGNESIUM
     Dosage: 40 MG, QD
  6. JANUVIA [Concomitant]
     Active Substance: SITAGLIPTIN PHOSPHATE
     Dosage: 50 MG, QD
  7. HYDROCHLOROTHIAZIDE. [Concomitant]
     Active Substance: HYDROCHLOROTHIAZIDE
     Dosage: 12.5 MG, QOD
  8. VITAMIN D3 [Concomitant]
     Active Substance: CHOLECALCIFEROL
     Indication: VITAMIN D DECREASED
  9. ATORVASTATIN [Concomitant]
     Active Substance: ATORVASTATIN
     Dosage: 40 MG, QD

REACTIONS (8)
  - Epistaxis [Not Recovered/Not Resolved]
  - Epistaxis [None]
  - Swelling face [None]
  - Pharyngeal haemorrhage [None]
  - Eye swelling [None]
  - Eye contusion [None]
  - Chest discomfort [None]
  - Rash macular [None]

NARRATIVE: CASE EVENT DATE: 20190204
